FAERS Safety Report 12563137 (Version 1)
Quarter: 2016Q3

REPORT INFORMATION
  Report Type: Spontaneous
  Country: US (occurrence: US)
  Receive Date: 20160715
  Receipt Date: 20160715
  Transmission Date: 20161109
  Serious: No
  Sender: FDA-Public Use
  Company Number: US-PFIZER INC-2016308557

PATIENT
  Sex: Female

DRUGS (9)
  1. METOPROLOL TARTRATE. [Suspect]
     Active Substance: METOPROLOL TARTRATE
     Dosage: UNK
  2. ULTRAM [Suspect]
     Active Substance: TRAMADOL HYDROCHLORIDE
     Dosage: UNK
  3. BACTRIM [Suspect]
     Active Substance: SULFAMETHOXAZOLE\TRIMETHOPRIM
     Dosage: UNK
  4. IBUPROFEN. [Suspect]
     Active Substance: IBUPROFEN
     Dosage: UNK
  5. ASPIRIN. [Suspect]
     Active Substance: ASPIRIN
     Dosage: UNK
  6. PROPAFENONE. [Suspect]
     Active Substance: PROPAFENONE
     Dosage: UNK
  7. MULTAQ [Suspect]
     Active Substance: DRONEDARONE
     Dosage: UNK
  8. SOTALOL. [Suspect]
     Active Substance: SOTALOL
     Dosage: UNK
  9. RYNA-12 [Suspect]
     Active Substance: PHENYLEPHRINE TANNATE\PYRILAMINE TANNATE
     Dosage: UNK

REACTIONS (3)
  - Drug hypersensitivity [Unknown]
  - Dermatitis contact [None]
  - Drug intolerance [Unknown]
